FAERS Safety Report 7226724-9 (Version None)
Quarter: 2011Q1

REPORT INFORMATION
  Report Type: 
  Country: None (occurrence: None)
  Receive Date: 20110110
  Receipt Date: 20110110
  Transmission Date: 20110831
  Serious: Yes (Death, Hospitalization)
  Sender: FDA-Public Use
  Company Number: None

PATIENT
  Sex: Female
  Weight: 73.3 kg

DRUGS (2)
  1. CISPLATIN [Suspect]
     Dosage: 129 MG
     Dates: end: 20101229
  2. ETOPOSIDE [Suspect]
     Dosage: 531 MG
     Dates: end: 20101230

REACTIONS (3)
  - RENAL FAILURE ACUTE [None]
  - MYOCARDIAL INFARCTION [None]
  - BONE MARROW FAILURE [None]
